FAERS Safety Report 7774670-4 (Version None)
Quarter: 2011Q3

REPORT INFORMATION
  Report Type: 
  Country: None (occurrence: None)
  Receive Date: 20110923
  Receipt Date: 20110915
  Transmission Date: 20111222
  Serious: Yes (Other)
  Sender: FDA-Public Use
  Company Number: US-AMGEN-KDL412905

PATIENT
  Sex: Female
  Weight: 83.9 kg

DRUGS (14)
  1. ENBREL [Suspect]
     Indication: PSORIATIC ARTHROPATHY
     Dosage: 50 MG, QWK
     Route: 058
     Dates: start: 20091201, end: 20100701
  2. DIAZEPAM [Concomitant]
     Dosage: 10 MG, QD
  3. ESOMEPRAZOLE MAGNESIUM [Concomitant]
     Dosage: 40 MG, QD
     Route: 048
  4. ZOLPIDEM TARTRATE [Concomitant]
     Dosage: 10 MG, PRN
     Route: 048
  5. TRIMETHOPRIM + SULFAMETHOXAZOLE [Concomitant]
     Dosage: UNK UNK, BID
     Route: 048
  6. OXYCODONE/ACETAMINOPHEN [Concomitant]
     Dosage: UNK UNK, PRN
     Route: 048
  7. ATORVASTATIN CALCIUM [Concomitant]
     Dosage: 10 MG, QD
     Route: 048
  8. ASPIRIN [Concomitant]
     Dosage: 81 MG, QD
     Route: 048
  9. ENBREL [Suspect]
     Indication: PSORIASIS
  10. CALCIUM CARBONATE [Concomitant]
     Dosage: 600 MG, UNK
     Route: 048
  11. LORAZEPAM [Concomitant]
     Dosage: .5 MG, PRN
  12. ALENDRONATE SODIUM [Concomitant]
     Dosage: 70 MG, QWK
     Route: 048
  13. CELEXA [Concomitant]
     Dosage: 40 MG, QD
     Route: 048
  14. CALCITRIOL [Concomitant]
     Dosage: 3 MUG, BID
     Route: 061

REACTIONS (5)
  - PSORIASIS [None]
  - PANCREATIC NEOPLASM [None]
  - PANCREATIC PSEUDOCYST [None]
  - PANCREATIC CYST [None]
  - WEIGHT DECREASED [None]
